FAERS Safety Report 6560956-8 (Version None)
Quarter: 2010Q1

REPORT INFORMATION
  Report Type: 
  Country: None (occurrence: None)
  Receive Date: 20100130
  Receipt Date: 20090929
  Transmission Date: 20100710
  Serious: No
  Sender: FDA-Public Use
  Company Number: US-ABBOTT-09P-163-0600350-00

PATIENT
  Sex: Female
  Weight: 56.75 kg

DRUGS (7)
  1. HUMIRA [Suspect]
     Indication: RHEUMATOID ARTHRITIS
     Dosage: SYRINGE
  2. HUMIRA [Suspect]
     Dosage: PEN
  3. HUMIRA [Suspect]
     Indication: RHEUMATOID ARTHRITIS
     Dosage: NOT REPORTED
     Dates: start: 20090817
  4. PREDNISONE [Concomitant]
     Indication: DRUG USE FOR UNKNOWN INDICATION
  5. XANAX [Concomitant]
     Indication: DRUG USE FOR UNKNOWN INDICATION
  6. MOTRIN [Concomitant]
     Indication: DRUG USE FOR UNKNOWN INDICATION
  7. CLARITIN [Concomitant]
     Indication: DRUG USE FOR UNKNOWN INDICATION

REACTIONS (2)
  - OEDEMA PERIPHERAL [None]
  - SKIN DISCOLOURATION [None]
